FAERS Safety Report 25150076 (Version 1)
Quarter: 2025Q2

REPORT INFORMATION
  Report Type: Spontaneous
  Country: US (occurrence: None)
  Receive Date: 20250402
  Receipt Date: 20250402
  Transmission Date: 20250717
  Serious: Yes (Hospitalization)
  Sender: FDA-CTU
  Company Number: None

PATIENT
  Age: 84 Year
  Sex: Female

DRUGS (1)
  1. ATENOLOL\CHLORTHALIDONE [Suspect]
     Active Substance: ATENOLOL\CHLORTHALIDONE
     Dosage: FREQUENCY : DAILY;?
     Route: 048
     Dates: start: 20241212, end: 20250301

REACTIONS (3)
  - Malaise [None]
  - Fatigue [None]
  - Blood sodium decreased [None]

NARRATIVE: CASE EVENT DATE: 20250301
